FAERS Safety Report 4432984-X (Version None)
Quarter: 2004Q3

REPORT INFORMATION
  Report Type: 
  Country: None (occurrence: None)
  Receive Date: 20040825
  Receipt Date: 20040816
  Transmission Date: 20050211
  Serious: Yes (Disabling)
  Sender: FDA-Public Use
  Company Number: GB-ROCHE-377816

PATIENT
  Age: 60 Year
  Sex: Female
  Weight: 70.7 kg

DRUGS (9)
  1. XELODA [Suspect]
     Dosage: REPORTED DOSAGE IN 4 CYCLES.
     Route: 048
     Dates: start: 20040330, end: 20040615
  2. XELODA [Suspect]
     Route: 048
     Dates: start: 20040714
  3. XELODA [Suspect]
     Route: 048
  4. PYRIDOXINE [Concomitant]
     Indication: HAND AND FOOT SYNDROME SECONDARY TO SICKLE CELL ANAEMIA
     Route: 048
     Dates: start: 20040419, end: 20040601
  5. CYCLIZINE [Concomitant]
     Indication: PROPHYLAXIS OF NAUSEA AND VOMITING
     Route: 048
     Dates: start: 20040511, end: 20040614
  6. DOMPERIDONE [Concomitant]
     Indication: PROPHYLAXIS OF NAUSEA AND VOMITING
     Dosage: TO BE TAKEN WHEN REQUIRED
     Route: 048
     Dates: start: 20040115, end: 20040511
  7. TAXOTERE [Concomitant]
     Route: 042
  8. DEXAMETHASONE [Concomitant]
     Dosage: FOR THREE DAYS
     Route: 065
  9. ONDANSETRON [Concomitant]
     Dosage: FOR TWO DAYS
     Route: 065

REACTIONS (3)
  - BALANCE DISORDER [None]
  - MYOCLONUS [None]
  - TREMOR [None]
